FAERS Safety Report 10196207 (Version 1)
Quarter: 2014Q2

REPORT INFORMATION
  Report Type: Spontaneous
  Country: BR (occurrence: BR)
  Receive Date: 20140527
  Receipt Date: 20140527
  Transmission Date: 20141212
  Serious: Yes (Other)
  Sender: FDA-Public Use
  Company Number: BR-BAYER-2014-074852

PATIENT
  Age: 42 Year
  Sex: Female

DRUGS (2)
  1. YAZ (24) [Suspect]
     Indication: CONTRACEPTION
     Dosage: UNK
     Route: 048
     Dates: start: 2013
  2. AMOXICILLIN [Concomitant]
     Dosage: UNK
     Dates: start: 201403, end: 201403

REACTIONS (1)
  - Knee operation [Recovered/Resolved]
